FAERS Safety Report 4768016-3 (Version None)
Quarter: 2005Q3

REPORT INFORMATION
  Report Type: 
  Country: None (occurrence: None)
  Receive Date: 20050913
  Receipt Date: 20050831
  Transmission Date: 20060218
  Serious: Yes (Hospitalization, Other)
  Sender: FDA-Public Use
  Company Number: 2005122953

PATIENT
  Age: 59 Year
  Sex: Female
  Weight: 58.514 kg

DRUGS (6)
  1. GENOTROPIN [Suspect]
     Indication: OVARIAN FAILURE
     Dosage: SEE IMAGE
     Route: 058
     Dates: end: 20050826
  2. GENOTROPIN [Suspect]
     Indication: OVARIAN FAILURE
     Dosage: SEE IMAGE
     Route: 058
     Dates: start: 20040101
  3. ESTROGEN W/MEDROXYPROGESTERON (ESTROGEN, MEDROXYPROGESTERONE) [Concomitant]
  4. LASIX [Concomitant]
  5. POTASSIUM (POTASSIUM) [Concomitant]
  6. LISINOPRIL [Concomitant]

REACTIONS (7)
  - ALANINE AMINOTRANSFERASE INCREASED [None]
  - AMNESIA [None]
  - CARPAL TUNNEL SYNDROME [None]
  - FEELING ABNORMAL [None]
  - HEPATIC ENZYME INCREASED [None]
  - PAIN IN EXTREMITY [None]
  - PANCREATITIS ACUTE [None]
